FAERS Safety Report 24732187 (Version 1)
Quarter: 2024Q4

REPORT INFORMATION
  Report Type: Spontaneous
  Country: US (occurrence: US)
  Receive Date: 20241213
  Receipt Date: 20241213
  Transmission Date: 20250115
  Serious: Yes (Hospitalization)
  Sender: PFIZER
  Company Number: US-PFIZER INC-PV202400161234

PATIENT
  Age: 74 Year
  Sex: Female
  Weight: 83.28 kg

DRUGS (3)
  1. IBRANCE [Suspect]
     Active Substance: PALBOCICLIB
     Indication: Breast cancer female
     Dosage: 1 PO QD DAYS 1-21 OF 28 DAY CYCLE
     Route: 048
  2. FEMARA [Concomitant]
     Active Substance: LETROZOLE
     Dosage: UNK
  3. XGEVA [Concomitant]
     Active Substance: DENOSUMAB
     Indication: Breast cancer stage IV
     Dosage: UNK

REACTIONS (2)
  - Full blood count decreased [Unknown]
  - Iron deficiency anaemia [Unknown]
